FAERS Safety Report 23502358 (Version 1)
Quarter: 2024Q1

REPORT INFORMATION
  Report Type: Spontaneous
  Country: US (occurrence: US)
  Receive Date: 20240208
  Receipt Date: 20240208
  Transmission Date: 20240410
  Serious: No
  Sender: FDA-Public Use
  Company Number: US-INTRA-CELLULAR THERAPIES, INC.-2023ICT00390

PATIENT
  Age: 58 Year
  Sex: Female
  Weight: 77.098 kg

DRUGS (8)
  1. CAPLYTA [Suspect]
     Active Substance: LUMATEPERONE
     Indication: Bipolar II disorder
     Dosage: 42 MG, 1X/DAY
     Route: 048
     Dates: start: 202303, end: 202303
  2. CAPLYTA [Suspect]
     Active Substance: LUMATEPERONE
     Indication: Bipolar disorder
     Dosage: 21 MG, 1X/DAY FOR ONE WEEK
     Route: 048
     Dates: start: 202303, end: 20230311
  3. CAPLYTA [Suspect]
     Active Substance: LUMATEPERONE
     Dosage: 42 MG, 1X/DAY
     Route: 048
     Dates: start: 20230312
  4. LAMICTAL [Suspect]
     Active Substance: LAMOTRIGINE
     Dosage: TAPERED OFF
     Dates: end: 202303
  5. LORAZEPAM [Concomitant]
     Active Substance: LORAZEPAM
  6. EFFEXOR [Concomitant]
     Active Substance: VENLAFAXINE HYDROCHLORIDE
  7. GEODON [Concomitant]
     Active Substance: ZIPRASIDONE HYDROCHLORIDE\ZIPRASIDONE MESYLATE
  8. VRAYLAR [Concomitant]
     Active Substance: CARIPRAZINE

REACTIONS (10)
  - Off label use [Recovered/Resolved]
  - Feeling hot [Recovered/Resolved]
  - Temperature regulation disorder [Recovered/Resolved]
  - Performance status decreased [Recovered/Resolved]
  - Functional gastrointestinal disorder [Not Recovered/Not Resolved]
  - Muscle twitching [Not Recovered/Not Resolved]
  - Fatigue [Recovered/Resolved]
  - Dizziness [Recovered/Resolved]
  - Nausea [Recovering/Resolving]
  - Dry mouth [Recovering/Resolving]

NARRATIVE: CASE EVENT DATE: 20230301
